FAERS Safety Report 8757312 (Version 3)
Quarter: 2013Q4

REPORT INFORMATION
  Report Type: Spontaneous
  Country: US (occurrence: US)
  Receive Date: 20120828
  Receipt Date: 20131101
  Transmission Date: 20140711
  Serious: No
  Sender: FDA-Public Use
  Company Number: US-009507513-1207USA008677

PATIENT
  Age: 16 Year
  Sex: Female
  Weight: 104.31 kg

DRUGS (10)
  1. IMPLANON [Suspect]
     Indication: CONTRACEPTION
     Dosage: 1 DF, LEFT ARM
     Dates: start: 20110429, end: 20120718
  2. IMPLANON [Suspect]
     Dosage: UNK
     Dates: start: 20120718
  3. TOPAMAX [Concomitant]
  4. PRILOSEC [Concomitant]
  5. FLONASE [Concomitant]
  6. CLONIDINE [Concomitant]
  7. IMITREX (SUMATRIPTAN) [Concomitant]
  8. CELEXA [Concomitant]
  9. ZYRTEC [Concomitant]
  10. WELLBUTRIN XL [Concomitant]

REACTIONS (3)
  - Device breakage [Recovered/Resolved]
  - No adverse event [Unknown]
  - Medical device complication [Unknown]
